FAERS Safety Report 8348902-8 (Version None)
Quarter: 2012Q2

REPORT INFORMATION
  Report Type: 
  Country: None (occurrence: None)
  Receive Date: 20120508
  Receipt Date: 20120427
  Transmission Date: 20120825
  Serious: Yes (Other)
  Sender: FDA-Public Use
  Company Number: 2012SP022699

PATIENT
  Sex: Male

DRUGS (2)
  1. RIBAVIRIN [Suspect]
     Indication: HEPATITIS C
     Dosage: ;UNK;UNK
     Dates: start: 20120424
  2. PEG-INTRON [Suspect]
     Indication: HEPATITIS C
     Dosage: ;UNK;UNK
     Dates: start: 20120424

REACTIONS (6)
  - OVERDOSE [None]
  - INCORRECT DOSE ADMINISTERED [None]
  - HANGOVER [None]
  - EJACULATION FAILURE [None]
  - INFLUENZA LIKE ILLNESS [None]
  - ALCOHOL USE [None]
